FAERS Safety Report 9192685 (Version 1)
Quarter: 2013Q1

REPORT INFORMATION
  Report Type: Spontaneous
  Country: US (occurrence: US)
  Receive Date: 20130327
  Receipt Date: 20130327
  Transmission Date: 20140127
  Serious: No
  Sender: FDA-Public Use
  Company Number: US-009507513-1303USA012899

PATIENT
  Age: 60 Year
  Sex: Female

DRUGS (3)
  1. ZIOPTAN [Suspect]
     Indication: GLAUCOMA
  2. SYNTHROID [Concomitant]
  3. ACIPHEX [Concomitant]

REACTIONS (1)
  - Arthralgia [Unknown]
